FAERS Safety Report 8598853-9 (Version None)
Quarter: 2012Q3

REPORT INFORMATION
  Report Type: 
  Country: None (occurrence: None)
  Receive Date: 20120816
  Receipt Date: 20120808
  Transmission Date: 20120928
  Serious: Yes (Hospitalization)
  Sender: FDA-Public Use
  Company Number: AU-GLAXOSMITHKLINE-B0822939A

PATIENT
  Sex: Female
  Weight: 72.2 kg

DRUGS (2)
  1. ELTROMBOPAG [Suspect]
     Indication: THROMBOCYTOPENIA
     Dosage: 100MG CYCLIC
     Route: 048
     Dates: start: 20120716
  2. AZACITIDINE [Suspect]
     Indication: THROMBOCYTOPENIA
     Dosage: 125MG CYCLIC
     Route: 058
     Dates: start: 20120716

REACTIONS (1)
  - CELLULITIS [None]
